FAERS Safety Report 22538501 (Version 1)
Quarter: 2023Q2

REPORT INFORMATION
  Report Type: Spontaneous
  Country: US (occurrence: None)
  Receive Date: 20230609
  Receipt Date: 20230609
  Transmission Date: 20230721
  Serious: Yes (Death)
  Sender: FDA-Public Use
  Company Number: US-ROCHE-3364403

PATIENT
  Sex: Male

DRUGS (13)
  1. ERIVEDGE [Suspect]
     Active Substance: VISMODEGIB
     Indication: Basal cell carcinoma
     Route: 048
  2. BENADRYL [Concomitant]
     Active Substance: DIPHENHYDRAMINE HYDROCHLORIDE
  3. ALBUTEROL [Concomitant]
     Active Substance: ALBUTEROL
  4. BUDESONIDE [Concomitant]
     Active Substance: BUDESONIDE
     Dosage: 0.5 MG/2ML
  5. DEBROX (UNITED STATES) [Concomitant]
  6. GLYCOPYRROLATE [Concomitant]
     Active Substance: GLYCOPYRROLATE
     Dosage: 4MG/20ML
  7. IPRATROPIUM [Concomitant]
     Active Substance: IPRATROPIUM
  8. .BETA.-HYDROXYISOVALERIC ACID\ARGININE\GLUTAMINE [Concomitant]
     Active Substance: .BETA.-HYDROXYISOVALERIC ACID\ARGININE\GLUTAMINE
  9. MIRALAX [Concomitant]
     Active Substance: POLYETHYLENE GLYCOL 3350
     Dosage: 17 GM/SCOOP
  10. PEPCID [Concomitant]
     Active Substance: FAMOTIDINE
  11. SENNA [Concomitant]
     Active Substance: SENNA LEAF\SENNOSIDES\SENNOSIDES A AND B
     Dosage: 8.8MG/5 ML
  12. THIAMINE HYDROCHLORIDE [Concomitant]
     Active Substance: THIAMINE HYDROCHLORIDE
  13. TYLENOL [Concomitant]
     Active Substance: ACETAMINOPHEN

REACTIONS (1)
  - Death [Fatal]

NARRATIVE: CASE EVENT DATE: 20230525
